FAERS Safety Report 10176326 (Version 1)
Quarter: 2014Q2

REPORT INFORMATION
  Report Type: Spontaneous
  Country: US (occurrence: None)
  Receive Date: 20140515
  Receipt Date: 20140515
  Transmission Date: 20141212
  Serious: Yes (Other)
  Sender: FDA-Public Use
  Company Number: None

PATIENT
  Sex: Male
  Weight: 81.65 kg

DRUGS (7)
  1. INVEGA [Suspect]
     Indication: MOOD ALTERED
     Route: 030
  2. ADDARAL [Concomitant]
  3. DEPECOK [Concomitant]
  4. LECRRICA [Concomitant]
  5. TAZADINE [Concomitant]
  6. HYDROW [Concomitant]
  7. ABILIFIE [Concomitant]

REACTIONS (2)
  - Galactorrhoea [None]
  - Blood testosterone decreased [None]
